FAERS Safety Report 19632791 (Version 2)
Quarter: 2021Q3

REPORT INFORMATION
  Report Type: Report from Study
  Country: JP (occurrence: JP)
  Receive Date: 20210730
  Receipt Date: 20210809
  Transmission Date: 20211014
  Serious: Yes (Hospitalization, Other)
  Sender: FDA-Public Use
  Company Number: JP-BRISTOL-MYERS SQUIBB COMPANY-BMS-2021-071951

PATIENT
  Age: 70 Year
  Sex: Male
  Weight: 78 kg

DRUGS (14)
  1. IPILIMUMAB [Suspect]
     Active Substance: IPILIMUMAB
     Indication: HEPATOCELLULAR CARCINOMA
     Dosage: 233 MILLIGRAM
     Route: 042
     Dates: start: 20210428
  2. NIFEDIPINE. [Concomitant]
     Active Substance: NIFEDIPINE
     Indication: PRODUCT USED FOR UNKNOWN INDICATION
     Dosage: 20 MILLIGRAM
     Route: 048
     Dates: start: 20181016
  3. NAPHAZOLINE NITRATE;PHENYLEPHRINE [Concomitant]
     Indication: PRODUCT USED FOR UNKNOWN INDICATION
     Dosage: UNK
     Route: 061
     Dates: start: 202104
  4. LOXOPROFEN SODIUM [Concomitant]
     Active Substance: LOXOPROFEN SODIUM
     Indication: PRODUCT USED FOR UNKNOWN INDICATION
     Dosage: UNK
     Route: 061
     Dates: start: 20210519
  5. L?CARBOCISTEINE [Concomitant]
     Active Substance: CARBOCYSTEINE
     Indication: PNEUMONITIS
     Dosage: 750 MILLIGRAM
     Route: 048
     Dates: start: 20210630
  6. LANSOPRAZOLE. [Concomitant]
     Active Substance: LANSOPRAZOLE
     Indication: PRODUCT USED FOR UNKNOWN INDICATION
     Dosage: 30 MILLIGRAM
     Route: 048
     Dates: start: 20201129
  7. COVID?19 VACCINE [Concomitant]
     Indication: PROPHYLAXIS
     Dosage: UNK
     Route: 030
     Dates: start: 20210708
  8. LEVOFLOXACIN HEMIHYDRATE [Concomitant]
     Active Substance: LEVOFLOXACIN
     Indication: PNEUMONITIS
     Dosage: 500 MILLIGRAM
     Route: 048
     Dates: start: 20210707
  9. NIVOLUMAB [Suspect]
     Active Substance: NIVOLUMAB
     Indication: HEPATOCELLULAR CARCINOMA
     Dosage: 78 MILLIGRAM
     Route: 042
     Dates: start: 20210428
  10. DEXTROMETHORPHAN [Concomitant]
     Active Substance: DEXTROMETHORPHAN
     Indication: PNEUMONITIS
     Dosage: 45 MILLIGRAM
     Route: 048
     Dates: start: 20210630
  11. BUFFERIN PREMIUM [Concomitant]
     Indication: PYREXIA
     Dosage: UNK
     Route: 048
     Dates: start: 20210701
  12. RESTAMINE [Concomitant]
     Indication: PRURITUS
     Dosage: UNK
     Route: 061
     Dates: start: 20210609
  13. METFORMIN HYDROCHLORIDE. [Concomitant]
     Active Substance: METFORMIN HYDROCHLORIDE
     Indication: PRODUCT USED FOR UNKNOWN INDICATION
     Dosage: 250 MILLIGRAM
     Route: 048
     Dates: start: 20200821
  14. SANTE FX NEO [Concomitant]
     Indication: PRODUCT USED FOR UNKNOWN INDICATION
     Dosage: UNK
     Route: 047
     Dates: start: 202104

REACTIONS (1)
  - Bacteraemia [Recovered/Resolved]

NARRATIVE: CASE EVENT DATE: 20210722
